FAERS Safety Report 7307669-2 (Version None)
Quarter: 2011Q1

REPORT INFORMATION
  Report Type: 
  Country: None (occurrence: None)
  Receive Date: 20110223
  Receipt Date: 20110215
  Transmission Date: 20110831
  Serious: Yes (Hospitalization, Other)
  Sender: FDA-Public Use
  Company Number: US-SANOFI-AVENTIS-2011SA009917

PATIENT
  Age: 82 Year
  Sex: Female

DRUGS (4)
  1. DABIGATRAN ETEXILATE [Suspect]
     Indication: ANTICOAGULANT THERAPY
     Route: 065
     Dates: start: 20101201
  2. MULTAQ [Suspect]
     Indication: ATRIAL FIBRILLATION
     Route: 048
     Dates: start: 20101001
  3. COZAAR [Concomitant]
  4. ASPIRIN [Concomitant]

REACTIONS (3)
  - FATIGUE [None]
  - ATRIAL FIBRILLATION [None]
  - HAEMORRHAGE [None]
